FAERS Safety Report 23435417 (Version 1)
Quarter: 2024Q1

REPORT INFORMATION
  Report Type: Spontaneous
  Country: GB (occurrence: GB)
  Receive Date: 20240124
  Receipt Date: 20240124
  Transmission Date: 20240409
  Serious: Yes (Other)
  Sender: FDA-Public Use
  Company Number: GB-MHRA-MED-202401161144576500-WZRLS

PATIENT
  Age: 69 Year
  Sex: Male
  Weight: 70 kg

DRUGS (2)
  1. QUETIAPINE [Suspect]
     Active Substance: QUETIAPINE
     Indication: Adverse drug reaction
     Dosage: 50 MILLIGRAM, AT BED TIME,ONCE AT NIGHT
     Route: 065
     Dates: start: 20240114
  2. LOSARTAN [Concomitant]
     Active Substance: LOSARTAN
     Indication: Adverse drug reaction
     Dosage: UNK
     Route: 065
     Dates: end: 2023

REACTIONS (1)
  - Hallucination [Recovered/Resolved]

NARRATIVE: CASE EVENT DATE: 20240114
